FAERS Safety Report 14593150 (Version 1)
Quarter: 2018Q1

REPORT INFORMATION
  Report Type: Spontaneous
  Country: US (occurrence: US)
  Receive Date: 20180302
  Receipt Date: 20180302
  Transmission Date: 20180509
  Serious: No
  Sender: FDA-Public Use
  Company Number: US-ENDO PHARMACEUTICALS INC-2017-004099

PATIENT
  Sex: Male

DRUGS (2)
  1. XIAFLEX [Suspect]
     Active Substance: COLLAGENASE CLOSTRIDIUM HISTOLYTICUM
     Dosage: LEFT HAND DUAL CHORD INJECTION OF 5TH DIGIT, 0.20 ML PIP JOINT,0.25 ML MP JOINT
     Route: 026
     Dates: start: 20170411, end: 20170411
  2. XIAFLEX [Suspect]
     Active Substance: COLLAGENASE CLOSTRIDIUM HISTOLYTICUM
     Indication: DUPUYTREN^S CONTRACTURE
     Dosage: LEFT HAND DUAL CHORD INJECTION OF 5TH DIGIT, 0.20 ML PIP JOINT,0.25 ML MP JOINT
     Route: 026
     Dates: start: 20170718, end: 20170718

REACTIONS (5)
  - Limb discomfort [Unknown]
  - Injection site bruising [Not Recovered/Not Resolved]
  - Insomnia [Unknown]
  - Injection site pruritus [Recovering/Resolving]
  - Injection site swelling [Not Recovered/Not Resolved]

NARRATIVE: CASE EVENT DATE: 2017
